FAERS Safety Report 10522563 (Version 2)
Quarter: 2014Q4

REPORT INFORMATION
  Report Type: Spontaneous
  Country: US (occurrence: None)
  Receive Date: 20141010
  Receipt Date: 20141218
  Transmission Date: 20150528
  Serious: Yes (Life-Threatening, Hospitalization)
  Sender: FDA-Public Use
  Company Number: 201409160

PATIENT
  Age: 91 Year
  Sex: Male

DRUGS (1)
  1. XIAFLEX [Suspect]
     Active Substance: COLLAGENASE CLOSTRIDIUM HISTOLYTICUM
     Indication: DUPUYTREN^S CONTRACTURE
     Dosage: 1 IN 1 D, INTRALESIONAL
     Dates: start: 20140922, end: 20140922

REACTIONS (2)
  - Fall [None]
  - Pneumonia [None]

NARRATIVE: CASE EVENT DATE: 20140922
